FAERS Safety Report 11104009 (Version 2)
Quarter: 2015Q2

REPORT INFORMATION
  Report Type: Spontaneous
  Country: JP (occurrence: JP)
  Receive Date: 20150511
  Receipt Date: 20150514
  Transmission Date: 20150821
  Serious: Yes (Hospitalization)
  Sender: FDA-Public Use
  Company Number: JP-GLAXOSMITHKLINE-JP2015JPN061859

PATIENT
  Age: 67 Year
  Sex: Female
  Weight: 61.5 kg

DRUGS (8)
  1. ACOFIDE [Concomitant]
     Dosage: 200 MG, 1D
  2. KEPPRA [Concomitant]
     Active Substance: LEVETIRACETAM
     Dosage: 1.5 G, 1D
  3. SODIUM CHLORIDE. [Concomitant]
     Active Substance: SODIUM CHLORIDE
     Dosage: 2 G, 1D
  4. DEPAKENE [Concomitant]
     Active Substance: VALPROIC ACID
     Dosage: 1.5 G, 1D
  5. LAMICTAL [Suspect]
     Active Substance: LAMOTRIGINE
     Dosage: 25 MG, QD
     Route: 050
     Dates: start: 20150327
  6. DAIKENCHUTO [Concomitant]
     Active Substance: HERBALS
     Dosage: 5 G, 1D
  7. RACOL-NF [Concomitant]
     Dosage: 900 G, 1D
  8. LAMICTAL [Suspect]
     Active Substance: LAMOTRIGINE
     Indication: EPILEPSY
     Dosage: 25 MG, QOD
     Route: 050
     Dates: start: 20150313

REACTIONS (5)
  - Generalised erythema [Recovering/Resolving]
  - Rash generalised [Recovering/Resolving]
  - Rash [Recovering/Resolving]
  - Eczema [Recovering/Resolving]
  - Purpura [Recovering/Resolving]

NARRATIVE: CASE EVENT DATE: 20150426
